FAERS Safety Report 16277874 (Version 1)
Quarter: 2019Q2

REPORT INFORMATION
  Report Type: Spontaneous
  Country: US (occurrence: US)
  Receive Date: 20190506
  Receipt Date: 20190506
  Transmission Date: 20190711
  Serious: No
  Sender: FDA-Public Use
  Company Number: US-DUCHESNAY INC.-2066674

PATIENT
  Age: 61 Year
  Sex: Female

DRUGS (3)
  1. CLONIPAN [Concomitant]
  2. OSPHENA [Suspect]
     Active Substance: OSPEMIFENE
     Indication: PRODUCT USED FOR UNKNOWN INDICATION
     Route: 048
     Dates: start: 20181117, end: 20190313
  3. OMPRIZONE (UNSPECIFIED) [Concomitant]

REACTIONS (2)
  - Breast pain [Recovered/Resolved]
  - Myalgia [Recovered/Resolved]

NARRATIVE: CASE EVENT DATE: 20181229
